FAERS Safety Report 8003971-X (Version None)
Quarter: 2011Q4

REPORT INFORMATION
  Report Type: 
  Country: None (occurrence: None)
  Receive Date: 20111222
  Receipt Date: 20111213
  Transmission Date: 20120403
  Serious: Yes (Hospitalization, Other)
  Sender: FDA-Public Use
  Company Number: US-ASTRAZENECA-2011SE58802

PATIENT
  Age: 49 Year
  Sex: Female

DRUGS (4)
  1. TOPROL-XL [Suspect]
     Route: 048
  2. ESTROGEN PATCHES [Concomitant]
  3. LYRICA [Concomitant]
  4. ZOLOFT [Concomitant]

REACTIONS (6)
  - MITRAL VALVE INCOMPETENCE [None]
  - TRICUSPID VALVE INCOMPETENCE [None]
  - RESPIRATORY DISORDER [None]
  - AORTIC ANEURYSM [None]
  - MALAISE [None]
  - AORTIC DILATATION [None]
